FAERS Safety Report 6410891-0 (Version None)
Quarter: 2009Q4

REPORT INFORMATION
  Report Type: 
  Country: None (occurrence: None)
  Receive Date: 20091022
  Receipt Date: 20091012
  Transmission Date: 20100525
  Serious: Yes (Hospitalization)
  Sender: FDA-Public Use
  Company Number: IT-NOVOPROD-292749

PATIENT
  Sex: Female

DRUGS (5)
  1. ACTRAPID [Suspect]
     Indication: DIABETES MELLITUS
     Dosage: 38 IU, QD
     Dates: start: 20080928, end: 20090928
  2. PROTAPHANE [Suspect]
     Indication: DIABETES MELLITUS
     Dosage: 4 IU, QD
     Dates: start: 20080928, end: 20090928
  3. CYCLOSPORINE [Concomitant]
     Dosage: 150 MG, UNK
  4. AZATHIOPRINE [Concomitant]
     Dosage: 50 MG, UNK
  5. OMEPRAZOL                          /00661201/ [Concomitant]
     Dosage: 20 MG, UNK

REACTIONS (3)
  - ALTERED STATE OF CONSCIOUSNESS [None]
  - HYPOGLYCAEMIA [None]
  - MALAISE [None]
